FAERS Safety Report 8535490-6 (Version None)
Quarter: 2012Q3

REPORT INFORMATION
  Report Type: 
  Country: None (occurrence: None)
  Receive Date: 20120725
  Receipt Date: 20120626
  Transmission Date: 20120928
  Serious: No
  Sender: FDA-Public Use
  Company Number: US-009507513-2012SP035991

PATIENT

DRUGS (6)
  1. RIBASPHERE [Suspect]
  2. VICTRELIS [Suspect]
     Indication: HEPATITIS C
     Dosage: 800 MG, Q8H
     Route: 048
     Dates: start: 20120601
  3. BUSPIRONE HCL [Concomitant]
  4. NADOLOL [Concomitant]
  5. AMITRIPTYLINE HCL [Concomitant]
  6. PEGASYS [Suspect]
     Dosage: 180 ?G, QW
     Dates: start: 20120501

REACTIONS (2)
  - FATIGUE [None]
  - ANAEMIA [None]
